FAERS Safety Report 15391186 (Version 3)
Quarter: 2020Q1

REPORT INFORMATION
  Report Type: Spontaneous
  Country: JP (occurrence: JP)
  Receive Date: 20180917
  Receipt Date: 20200326
  Transmission Date: 20200409
  Serious: Yes (Other)
  Sender: FDA-Public Use
  Company Number: JP-GUERBET-JP-20180213

PATIENT
  Age: 8 Decade
  Sex: Male

DRUGS (2)
  1. LIPIODOL [Suspect]
     Active Substance: ETHIODIZED OIL
     Indication: REGIONAL CHEMOTHERAPY
     Route: 013
     Dates: start: 2017
  2. CISPLATIN. [Suspect]
     Active Substance: CISPLATIN
     Indication: REGIONAL CHEMOTHERAPY
     Route: 013

REACTIONS (4)
  - Product use in unapproved indication [Recovered/Resolved]
  - Jaundice cholestatic [Recovered/Resolved]
  - Tumour thrombosis [Recovered/Resolved]
  - Bile duct obstruction [Recovered/Resolved]
